FAERS Safety Report 6221008-X (Version None)
Quarter: 2009Q2

REPORT INFORMATION
  Report Type: 
  Country: None (occurrence: None)
  Receive Date: 20090610
  Receipt Date: 20090602
  Transmission Date: 20091009
  Serious: Yes (Other)
  Sender: FDA-Public Use
  Company Number: JP-JNJFOC-20090600359

PATIENT
  Age: 75 Year
  Sex: Female

DRUGS (4)
  1. RISPERDAL [Suspect]
     Indication: SCHIZOPHRENIA
     Dosage: IN EVENING
     Route: 048
  2. RISPERDAL [Suspect]
     Dosage: AT BEDTIME AS REQUIRED
     Route: 048
  3. GRAN [Concomitant]
     Route: 042
  4. INSULIN HUMAN [Concomitant]
     Dosage: DOSE 24 LU
     Route: 058

REACTIONS (3)
  - EXTRAPYRAMIDAL DISORDER [None]
  - EXTREMITY CONTRACTURE [None]
  - MUSCLE CONTRACTURE [None]
